FAERS Safety Report 5742283-1 (Version None)
Quarter: 2008Q2

REPORT INFORMATION
  Report Type: 
  Country: None (occurrence: None)
  Receive Date: 20080514
  Receipt Date: 20080514
  Transmission Date: 20081010
  Serious: Yes (Other)
  Sender: FDA-Public Use
  Company Number: None

PATIENT
  Age: 45 Year
  Sex: Male
  Weight: 95.2554 kg

DRUGS (1)
  1. DIGITEK 0.25 MG MYLAN BERT [Suspect]
     Indication: SINUS TACHYCARDIA
     Dosage: 0.25 MG ONE TIME DAILY PO
     Route: 048
     Dates: start: 20031030, end: 20080513

REACTIONS (6)
  - BACK INJURY [None]
  - CONTUSION [None]
  - DIZZINESS [None]
  - FACE INJURY [None]
  - FALL [None]
  - SYNCOPE [None]
